FAERS Safety Report 10465417 (Version 3)
Quarter: 2016Q1

REPORT INFORMATION
  Report Type: Report from Study
  Country: JP (occurrence: JP)
  Receive Date: 20140919
  Receipt Date: 20160125
  Transmission Date: 20160525
  Serious: Yes (Other)
  Sender: FDA-Public Use
  Company Number: JP-GILEAD-2014-0115475

PATIENT
  Age: 69 Year
  Sex: Female
  Weight: 42 kg

DRUGS (12)
  1. FUROSEMIDE. [Concomitant]
     Active Substance: FUROSEMIDE
     Route: 048
  2. WARFARIN [Concomitant]
     Active Substance: WARFARIN
     Route: 048
  3. FUROSEMIDE. [Concomitant]
     Active Substance: FUROSEMIDE
     Route: 048
  4. AMBRISENTAN [Suspect]
     Active Substance: AMBRISENTAN
     Indication: PULMONARY HYPERTENSION
     Dosage: 5 MG, QD
     Route: 048
     Dates: start: 20111121, end: 20111219
  5. ADCIRCA [Concomitant]
     Active Substance: TADALAFIL
     Indication: PULMONARY HYPERTENSION
     Route: 048
  6. CARELOAD [Concomitant]
     Active Substance: BERAPROST SODIUM
     Indication: PULMONARY HYPERTENSION
     Route: 048
  7. FUROSEMIDE. [Concomitant]
     Active Substance: FUROSEMIDE
     Route: 048
  8. WARFARIN [Concomitant]
     Active Substance: WARFARIN
     Route: 048
  9. ADCIRCA [Concomitant]
     Active Substance: TADALAFIL
     Indication: PULMONARY HYPERTENSION
     Route: 048
  10. WARFARIN [Concomitant]
     Active Substance: WARFARIN
     Indication: CARDIOVASCULAR EVENT PROPHYLAXIS
     Route: 048
  11. LENDORMIN [Concomitant]
     Active Substance: BROTIZOLAM
     Route: 048
  12. ADCIRCA [Concomitant]
     Active Substance: TADALAFIL
     Route: 048

REACTIONS (4)
  - Hepatic function abnormal [Recovering/Resolving]
  - Weight increased [Recovering/Resolving]
  - Myalgia [Recovering/Resolving]
  - Oedema peripheral [Recovering/Resolving]

NARRATIVE: CASE EVENT DATE: 201111
